FAERS Safety Report 25161312 (Version 6)
Quarter: 2025Q2

REPORT INFORMATION
  Report Type: Spontaneous
  Country: SE (occurrence: SE)
  Receive Date: 20250404
  Receipt Date: 20250502
  Transmission Date: 20250716
  Serious: Yes (Hospitalization)
  Sender: NOVARTIS
  Company Number: None

PATIENT
  Age: 65 Year
  Sex: Male

DRUGS (55)
  1. TACROLIMUS [Suspect]
     Active Substance: TACROLIMUS
     Indication: Product used for unknown indication
     Dosage: 2 MG, QD, (1 MG, Q12H)
     Route: 065
  2. TACROLIMUS [Suspect]
     Active Substance: TACROLIMUS
     Dosage: 4 MG, QD (2 MG, Q12H)
     Route: 065
  3. TACROLIMUS [Suspect]
     Active Substance: TACROLIMUS
     Dosage: 2 MG, Q12H
     Route: 065
  4. TACROLIMUS [Suspect]
     Active Substance: TACROLIMUS
     Dosage: 1 MG, Q12H
     Route: 065
  5. MYCOPHENOLIC ACID [Suspect]
     Active Substance: MYCOPHENOLIC ACID
     Indication: Product used for unknown indication
     Dosage: 1.5 G, Q12H, (3 G QD)
     Route: 065
  6. Doxazosin ebb [Concomitant]
     Indication: Product used for unknown indication
     Dosage: 4 MG, QD
     Route: 065
  7. ACETAMINOPHEN [Concomitant]
     Active Substance: ACETAMINOPHEN
     Indication: Product used for unknown indication
     Route: 065
  8. ACETAMINOPHEN [Concomitant]
     Active Substance: ACETAMINOPHEN
     Route: 065
  9. ACETAMINOPHEN [Concomitant]
     Active Substance: ACETAMINOPHEN
     Route: 065
  10. ACETAMINOPHEN [Concomitant]
     Active Substance: ACETAMINOPHEN
     Route: 065
  11. ERYTHROPOIETIN [Concomitant]
     Active Substance: ERYTHROPOIETIN
     Indication: Product used for unknown indication
     Route: 065
  12. ERYTHROPOIETIN [Concomitant]
     Active Substance: ERYTHROPOIETIN
     Route: 065
  13. ERYTHROPOIETIN [Concomitant]
     Active Substance: ERYTHROPOIETIN
     Route: 065
  14. ERYTHROPOIETIN [Concomitant]
     Active Substance: ERYTHROPOIETIN
     Route: 065
  15. PREDNISOLONE [Concomitant]
     Active Substance: PREDNISOLONE
     Indication: Product used for unknown indication
     Route: 065
  16. PREDNISOLONE [Concomitant]
     Active Substance: PREDNISOLONE
     Route: 065
  17. PREDNISOLONE [Concomitant]
     Active Substance: PREDNISOLONE
     Route: 065
  18. FELODIPINE [Concomitant]
     Active Substance: FELODIPINE
     Indication: Product used for unknown indication
     Dosage: 10 MG, QD
     Route: 065
  19. MYFENAX [Concomitant]
     Active Substance: MYCOPHENOLATE MOFETIL
     Indication: Product used for unknown indication
     Route: 065
  20. MYFENAX [Concomitant]
     Active Substance: MYCOPHENOLATE MOFETIL
     Route: 065
  21. MYFENAX [Concomitant]
     Active Substance: MYCOPHENOLATE MOFETIL
     Route: 065
  22. MYFENAX [Concomitant]
     Active Substance: MYCOPHENOLATE MOFETIL
     Route: 065
  23. SACCHAROMYCES CEREVISIAE [Concomitant]
     Active Substance: SACCHAROMYCES CEREVISIAE
     Indication: Product used for unknown indication
     Dosage: 250 MG, Q12H
     Route: 065
  24. Ciprofloxbact [Concomitant]
     Indication: Product used for unknown indication
     Route: 065
  25. Ciprofloxbact [Concomitant]
     Route: 065
  26. FUROSEMIDE [Concomitant]
     Active Substance: FUROSEMIDE
     Indication: Product used for unknown indication
     Dosage: 40 MG, Q12H
     Route: 065
  27. LOPERAMIDE [Concomitant]
     Active Substance: LOPERAMIDE
     Indication: Product used for unknown indication
     Route: 065
  28. LOPERAMIDE [Concomitant]
     Active Substance: LOPERAMIDE
     Route: 065
  29. LOPERAMIDE [Concomitant]
     Active Substance: LOPERAMIDE
     Route: 065
  30. SPIRONOLACTONE [Concomitant]
     Active Substance: SPIRONOLACTONE
     Indication: Product used for unknown indication
     Route: 065
  31. SPIRONOLACTONE [Concomitant]
     Active Substance: SPIRONOLACTONE
     Route: 065
  32. SPIRONOLACTONE [Concomitant]
     Active Substance: SPIRONOLACTONE
     Route: 065
  33. SPIRONOLACTONE [Concomitant]
     Active Substance: SPIRONOLACTONE
     Route: 065
  34. Omeprazol AGP [Concomitant]
     Indication: Product used for unknown indication
     Route: 065
  35. Omeprazol AGP [Concomitant]
     Route: 065
  36. SODIUM BICARBONATE [Concomitant]
     Active Substance: SODIUM BICARBONATE
     Indication: Product used for unknown indication
     Dosage: 1 G, Q8H
     Route: 065
  37. FRAGMIN [Concomitant]
     Active Substance: DALTEPARIN SODIUM
     Indication: Product used for unknown indication
     Route: 065
  38. FRAGMIN [Concomitant]
     Active Substance: DALTEPARIN SODIUM
     Route: 065
  39. FRAGMIN [Concomitant]
     Active Substance: DALTEPARIN SODIUM
     Route: 065
  40. FRAGMIN [Concomitant]
     Active Substance: DALTEPARIN SODIUM
     Route: 065
  41. Metoproferm [Concomitant]
     Indication: Product used for unknown indication
     Route: 065
  42. Metoproferm [Concomitant]
     Route: 065
  43. CIPROFLOXACIN [Concomitant]
     Active Substance: CIPROFLOXACIN
     Indication: Product used for unknown indication
     Route: 065
  44. CIPROFLOXACIN [Concomitant]
     Active Substance: CIPROFLOXACIN
     Route: 065
  45. CIPROFLOXACIN [Concomitant]
     Active Substance: CIPROFLOXACIN
     Route: 065
  46. CIPROFLOXACIN [Concomitant]
     Active Substance: CIPROFLOXACIN
     Route: 065
  47. DOXAZOSIN [Concomitant]
     Active Substance: DOXAZOSIN MESYLATE
     Indication: Product used for unknown indication
     Dosage: 4 MG, QD
     Route: 065
  48. METOPROLOL [Concomitant]
     Active Substance: METOPROLOL
     Indication: Product used for unknown indication
     Route: 065
  49. METOPROLOL [Concomitant]
     Active Substance: METOPROLOL
     Route: 065
  50. METOPROLOL [Concomitant]
     Active Substance: METOPROLOL
     Route: 065
  51. METOPROLOL [Concomitant]
     Active Substance: METOPROLOL
     Route: 065
  52. OMEPRAZOLE [Concomitant]
     Active Substance: OMEPRAZOLE
     Indication: Product used for unknown indication
     Route: 065
  53. OMEPRAZOLE [Concomitant]
     Active Substance: OMEPRAZOLE
     Route: 065
  54. OMEPRAZOLE [Concomitant]
     Active Substance: OMEPRAZOLE
     Route: 065
  55. OMEPRAZOLE [Concomitant]
     Active Substance: OMEPRAZOLE
     Route: 065

REACTIONS (1)
  - Pancytopenia [Unknown]

NARRATIVE: CASE EVENT DATE: 20230317
